FAERS Safety Report 13297311 (Version 5)
Quarter: 2017Q2

REPORT INFORMATION
  Report Type: Spontaneous
  Country: FR (occurrence: FR)
  Receive Date: 20170306
  Receipt Date: 20170406
  Transmission Date: 20170830
  Serious: Yes (Death, Other)
  Sender: FDA-Public Use
  Company Number: FR-GLAXOSMITHKLINE-FR2017GSK030030

PATIENT
  Age: 31 Year
  Sex: Male

DRUGS (3)
  1. RINOCLENIL [Suspect]
     Active Substance: BECLOMETHASONE
     Indication: INFLUENZA
     Dosage: 2 DF, BID (2 SPRAYS IN EACH NOSTRIL PER DAY)
     Route: 045
     Dates: start: 20161206, end: 20161206
  2. CEFUROXIME BIOGARAN [Suspect]
     Active Substance: CEFUROXIME
     Indication: INFLUENZA
     Dosage: 250 MG, TID
     Route: 048
     Dates: start: 20161206, end: 20161206
  3. FLANID GE [Suspect]
     Active Substance: TIAPROFENIC ACID
     Indication: INFLUENZA
     Dosage: 200 MG, TID
     Route: 048
     Dates: start: 20161206, end: 20161206

REACTIONS (1)
  - Sudden death [Fatal]

NARRATIVE: CASE EVENT DATE: 20161206
